FAERS Safety Report 7442421-9 (Version None)
Quarter: 2011Q2

REPORT INFORMATION
  Report Type: 
  Country: None (occurrence: None)
  Receive Date: 20110425
  Receipt Date: 20110425
  Transmission Date: 20111010
  Serious: Yes (Other)
  Sender: FDA-Public Use
  Company Number: None

PATIENT
  Age: 39 Year
  Sex: Female
  Weight: 68.0396 kg

DRUGS (3)
  1. DROSPIRENONE AND ETHINYL ESTRADIOL [Suspect]
     Indication: PREMENSTRUAL SYNDROME
     Dosage: 1 TABLET QD PO
     Route: 048
     Dates: start: 20110313, end: 20110422
  2. YAZ [Suspect]
  3. DROSPIRENONE AND ETHINYL ESTRADIOL [Suspect]
     Indication: PREMENSTRUAL SYNDROME
     Dosage: 1 TABLET QD PO
     Route: 048

REACTIONS (3)
  - NAUSEA [None]
  - HEADACHE [None]
  - PRODUCT SUBSTITUTION ISSUE [None]
